FAERS Safety Report 10581389 (Version 1)
Quarter: 2014Q4

REPORT INFORMATION
  Report Type: Spontaneous
  Country: US (occurrence: None)
  Receive Date: 20141112
  Receipt Date: 20141112
  Transmission Date: 20150529
  Serious: Yes (Other)
  Sender: FDA-Public Use
  Company Number: None

PATIENT
  Age: 44 Year
  Sex: Female
  Weight: 56.7 kg

DRUGS (1)
  1. BUPROPION [Suspect]
     Active Substance: BUPROPION
     Indication: DEPRESSION
     Dosage: 1 BID ORAL
     Route: 048
     Dates: start: 20141101, end: 20141102

REACTIONS (5)
  - Panic attack [None]
  - Anxiety [None]
  - Product substitution issue [None]
  - Feeling of body temperature change [None]
  - Emotional disorder [None]

NARRATIVE: CASE EVENT DATE: 20141101
